FAERS Safety Report 19960331 (Version 1)
Quarter: 2021Q4

REPORT INFORMATION
  Report Type: Spontaneous
  Country: US (occurrence: US)
  Receive Date: 20211015
  Receipt Date: 20211015
  Transmission Date: 20220303
  Serious: Yes (Death, Hospitalization)
  Sender: FDA-Public Use
  Company Number: 2021A775126

PATIENT
  Age: 83 Year
  Sex: Female
  Weight: 93.9 kg

DRUGS (2)
  1. SEROQUEL [Suspect]
     Active Substance: QUETIAPINE FUMARATE
     Indication: Dementia
     Route: 048
     Dates: start: 20210704, end: 20210814
  2. SEROQUEL [Suspect]
     Active Substance: QUETIAPINE FUMARATE
     Indication: Agitation
     Route: 048
     Dates: start: 20210704, end: 20210814

REACTIONS (6)
  - Thrombosis [Fatal]
  - Myocardial infarction [Fatal]
  - Urinary tract infection [Unknown]
  - Sepsis [Unknown]
  - Somnolence [Unknown]
  - Off label use [Unknown]

NARRATIVE: CASE EVENT DATE: 20210101
